FAERS Safety Report 5266374-7 (Version None)
Quarter: 2007Q1

REPORT INFORMATION
  Report Type: 
  Country: None (occurrence: None)
  Receive Date: 20070315
  Receipt Date: 20070306
  Transmission Date: 20070707
  Serious: Yes (Life-Threatening)
  Sender: FDA-Public Use
  Company Number: US-BAXTER-2007BH002694

PATIENT
  Age: 15 Year
  Sex: Male

DRUGS (2)
  1. FEIBA VH IMMUNO [Suspect]
     Indication: FACTOR VIII DEFICIENCY
     Dosage: DOSE UNIT:UNITS PER KILOGRAM
     Route: 065
     Dates: start: 19800101
  2. FEIBA VH IMMUNO [Suspect]
     Dosage: DOSE UNIT:UNITS PER KILOGRAM
     Route: 065
     Dates: start: 19860101

REACTIONS (16)
  - ACUTE MYOCARDIAL INFARCTION [None]
  - ASPARTATE AMINOTRANSFERASE INCREASED [None]
  - CARDIAC FAILURE CONGESTIVE [None]
  - CONGESTIVE CARDIOMYOPATHY [None]
  - HAEMATOCRIT DECREASED [None]
  - HAEMATURIA [None]
  - HEART VALVE INSUFFICIENCY [None]
  - HYDRONEPHROSIS [None]
  - HYPOTENSION [None]
  - MYOCARDIAL FIBROSIS [None]
  - MYOCARDIAL INFARCTION [None]
  - PERICARDIAL EFFUSION [None]
  - PULMONARY OEDEMA [None]
  - RETROPERITONEAL HAEMORRHAGE [None]
  - VENTRICULAR DYSFUNCTION [None]
  - VENTRICULAR EXTRASYSTOLES [None]
